FAERS Safety Report 5267359-7 (Version None)
Quarter: 2007Q1

REPORT INFORMATION
  Report Type: 
  Country: None (occurrence: None)
  Receive Date: 20070316
  Receipt Date: 20070305
  Transmission Date: 20070707
  Serious: Yes (Hospitalization)
  Sender: FDA-Public Use
  Company Number: AU-MERCK-0702AUS00127

PATIENT
  Age: 77 Year
  Sex: Male

DRUGS (6)
  1. FOSAMAX [Suspect]
     Indication: OSTEOPOROSIS
     Route: 048
     Dates: start: 20070101
  2. MODURETIC 5-50 [Concomitant]
     Route: 065
     Dates: start: 20060101
  3. WARFARIN [Concomitant]
     Route: 065
     Dates: start: 20060101
  4. PERINDOPRIL ARGININE [Concomitant]
     Indication: HYPERTENSION
     Route: 065
  5. ATORVASTATIN CALCIUM [Concomitant]
     Indication: BLOOD CHOLESTEROL
     Route: 065
  6. RABEPRAZOLE SODIUM [Concomitant]
     Indication: ANTACID THERAPY
     Route: 065

REACTIONS (1)
  - CHEST PAIN [None]
